FAERS Safety Report 15405344 (Version 1)
Quarter: 2018Q3

REPORT INFORMATION
  Report Type: Spontaneous
  Country: US (occurrence: US)
  Receive Date: 20180920
  Receipt Date: 20180920
  Transmission Date: 20181010
  Serious: Yes (Hospitalization)
  Sender: FDA-Public Use
  Company Number: US-B.I. PHARMACEUTICALS,INC./RIDGEFIELD-2018-BI-045745

PATIENT
  Age: 7 Decade
  Sex: Male

DRUGS (2)
  1. JARDIANCE [Suspect]
     Active Substance: EMPAGLIFLOZIN
     Dosage: NR; STRENGTH: 10 MG; ADMINISTRATION CORRECT? NR(NOT REPORTED); ACTION TAKEN: NOT REPORTED
     Route: 048
     Dates: start: 2018
  2. JARDIANCE [Suspect]
     Active Substance: EMPAGLIFLOZIN
     Indication: PRODUCT USED FOR UNKNOWN INDICATION
     Dosage: STRENGTH: 25 MG; ADMINISTRATION CORRECT? NR(NOT REPORTED); ACTION TAKEN WITH PRODUCT: DRUG WITHDRAWN
     Route: 048
     Dates: end: 2018

REACTIONS (2)
  - Hypotension [Recovered/Resolved]
  - Syncope [Recovered/Resolved]

NARRATIVE: CASE EVENT DATE: 2018
